FAERS Safety Report 6685218-X (Version None)
Quarter: 2010Q2

REPORT INFORMATION
  Report Type: 
  Country: None (occurrence: None)
  Receive Date: 20100416
  Receipt Date: 20100405
  Transmission Date: 20101027
  Serious: Yes (Other)
  Sender: FDA-Public Use
  Company Number: US-ELI_LILLY_AND_COMPANY-US201004001600

PATIENT
  Sex: Male

DRUGS (2)
  1. ZYPREXA [Suspect]
     Indication: MAJOR DEPRESSION
     Dosage: 10 MG, DAILY (1/D)
     Dates: start: 20080101
  2. LEXAPRO [Concomitant]

REACTIONS (3)
  - BLOOD PRESSURE INCREASED [None]
  - OFF LABEL USE [None]
  - WEIGHT INCREASED [None]
